FAERS Safety Report 10357952 (Version 1)
Quarter: 2014Q3

REPORT INFORMATION
  Report Type: Spontaneous
  Country: US (occurrence: US)
  Receive Date: 20140801
  Receipt Date: 20140801
  Transmission Date: 20150326
  Serious: Yes (Other)
  Sender: FDA-Public Use
  Company Number: US-BRISTOL-MYERS SQUIBB COMPANY-21238415

PATIENT
  Age: 72 Year
  Sex: Female
  Weight: 84.35 kg

DRUGS (5)
  1. IRBESARTAN + HCTZ [Concomitant]
     Active Substance: HYDROCHLOROTHIAZIDE\IRBESARTAN
  2. NIFEDIPINE ER [Concomitant]
     Active Substance: NIFEDIPINE
  3. CRESTOR [Concomitant]
     Active Substance: ROSUVASTATIN CALCIUM
  4. ELIQUIS [Suspect]
     Active Substance: APIXABAN
     Indication: CEREBROVASCULAR ACCIDENT PROPHYLAXIS
     Dosage: INTERRUPTED ON 05JUL2014
     Dates: start: 20140501
  5. SOTALOL. [Concomitant]
     Active Substance: SOTALOL

REACTIONS (2)
  - Gallbladder operation [Unknown]
  - Pruritus [Recovering/Resolving]

NARRATIVE: CASE EVENT DATE: 2014
